FAERS Safety Report 9152739 (Version 1)
Quarter: 2013Q1

REPORT INFORMATION
  Report Type: Spontaneous
  Country: US (occurrence: US)
  Receive Date: 20130308
  Receipt Date: 20130308
  Transmission Date: 20140127
  Serious: Yes (Hospitalization, Other)
  Sender: FDA-Public Use
  Company Number: US-009507513-1303USA001867

PATIENT
  Age: 59 Year
  Sex: Female

DRUGS (17)
  1. SINGULAIR [Suspect]
     Dosage: 1 DF, UNK
  2. FLUTICASONE PROPIONATE (+) SALMETEROL XINAFOATE [Concomitant]
     Dosage: 2 DF, 250/50 G/DOSE
     Route: 002
  3. NEBIVOLOL HYDROCHLORIDE [Concomitant]
     Dosage: 1 DF, UNK
     Route: 048
  4. ASPIRIN [Concomitant]
     Dosage: 1 DF, UNK
     Route: 048
  5. PRAVASTATIN SODIUM [Concomitant]
     Dosage: 1 DF, UNK
  6. METFORMIN HYDROCHLORIDE [Concomitant]
     Dosage: 1000 MG, UNK
  7. LANSOPRAZOLE [Concomitant]
     Dosage: 1 DF, UNK
     Route: 048
  8. PRAZEPAM [Concomitant]
     Dosage: 1 DF, TID
  9. VALSARTAN [Concomitant]
     Dosage: 1 DF, UNK
     Route: 048
  10. SPIRIVA [Concomitant]
     Dosage: 1 UNK, UNK
  11. ALENDRONATE SODIUM [Concomitant]
     Dosage: 1 IN 1 DAY, QWK
  12. VENTOLIN (ALBUTEROL SULFATE) [Concomitant]
     Dosage: 1 DF, QD OR DEMAND BUCCAL
     Route: 002
  13. NEBIVOLOL HYDROCHLORIDE [Concomitant]
     Dosage: 10 MG, UNK
     Route: 048
  14. OXYCODONE HYDROCHLORIDE [Concomitant]
     Dosage: 1 DF, UNK
     Route: 048
  15. HALOPERIDOL [Concomitant]
     Dosage: 0.071 DF, (1 IN 2 WEEKS)
     Route: 042
  16. CLORAZEPATE DIPOTASSIUM [Concomitant]
     Dosage: 1 DF, UNK
     Route: 048
  17. TERCIAN [Concomitant]
     Route: 048

REACTIONS (32)
  - Renal failure acute [Unknown]
  - Diarrhoea [Unknown]
  - Anion gap increased [Unknown]
  - Hypochloraemia [Unknown]
  - Hyperkalaemia [Unknown]
  - Heart rate increased [Unknown]
  - Faeces discoloured [Unknown]
  - Hypoproteinaemia [Unknown]
  - Disorientation [Unknown]
  - Hypotension [Unknown]
  - Dehydration [Unknown]
  - C-reactive protein increased [Unknown]
  - Blood lactic acid decreased [Unknown]
  - Blood creatinine increased [Unknown]
  - Blood bicarbonate decreased [Unknown]
  - Azotaemia [Unknown]
  - Escherichia test positive [Unknown]
  - Polyuria [Unknown]
  - Urine potassium increased [Unknown]
  - Toxicity to various agents [Unknown]
  - Shigella test positive [Unknown]
  - Sepsis [Unknown]
  - Renal tubular necrosis [Unknown]
  - Hyponatraemia [Unknown]
  - Rales [Unknown]
  - Urine sodium increased [Unknown]
  - Polydipsia [Unknown]
  - PO2 increased [Unknown]
  - PCO2 decreased [Unknown]
  - Metabolic acidosis [Unknown]
  - Lymphopenia [Unknown]
  - Inflammation [Unknown]
